FAERS Safety Report 6057469-9 (Version None)
Quarter: 2009Q1

REPORT INFORMATION
  Report Type: 
  Country: None (occurrence: None)
  Receive Date: 20090126
  Receipt Date: 20090126
  Transmission Date: 20090719
  Serious: Yes (Other)
  Sender: FDA-Public Use
  Company Number: None

PATIENT
  Age: 36 Year
  Sex: Female
  Weight: 74.8435 kg

DRUGS (2)
  1. GABAPENTIN [Suspect]
     Indication: INTERVERTEBRAL DISC PROTRUSION
     Dosage: 300 MG X 2 P O
     Route: 048
     Dates: start: 20081215, end: 20090110
  2. GABAPENTIN [Suspect]
     Indication: PAIN
     Dosage: 300 MG X 2 P O
     Route: 048
     Dates: start: 20081215, end: 20090110

REACTIONS (6)
  - CHROMATURIA [None]
  - HEADACHE [None]
  - PYREXIA [None]
  - RASH PAPULAR [None]
  - RASH PRURITIC [None]
  - RHINORRHOEA [None]
